FAERS Safety Report 25821521 (Version 1)
Quarter: 2025Q3

REPORT INFORMATION
  Report Type: Spontaneous
  Country: US (occurrence: US)
  Receive Date: 20250919
  Receipt Date: 20250919
  Transmission Date: 20251021
  Serious: No
  Sender: ABBVIE
  Company Number: US-ABBVIE-6459012

PATIENT

DRUGS (1)
  1. RESTASIS [Suspect]
     Active Substance: CYCLOSPORINE
     Indication: Dry eye
     Route: 047

REACTIONS (6)
  - Product container issue [Unknown]
  - Intracranial mass [Unknown]
  - Visual impairment [Unknown]
  - Migraine [Unknown]
  - Balance disorder [Unknown]
  - Gait disturbance [Unknown]
